FAERS Safety Report 4372941-5 (Version None)
Quarter: 2004Q2

REPORT INFORMATION
  Report Type: 
  Country: None (occurrence: None)
  Receive Date: 20040603
  Receipt Date: 20040518
  Transmission Date: 20050107
  Serious: Yes (Hospitalization)
  Sender: FDA-Public Use
  Company Number: URSO-2004-001

PATIENT
  Age: 53 Year

DRUGS (6)
  1. DELURSAN (URODEOXYCHOLIC ACID) [Suspect]
     Indication: LIVER TRANSPLANT
     Dosage: ORAL
     Route: 048
     Dates: start: 20010106
  2. ZEFFIX (LAMMIVUDINE) [Concomitant]
  3. ALLOPURINOL [Concomitant]
  4. GLYBURIDE [Concomitant]
  5. AMLODIPINE BESYLATE [Concomitant]
  6. PROGRAF [Concomitant]

REACTIONS (4)
  - AGRANULOCYTOSIS [None]
  - BONE MARROW DEPRESSION [None]
  - LEUKOPENIA [None]
  - LIPOMATOSIS [None]
